FAERS Safety Report 7371044-5 (Version None)
Quarter: 2011Q1

REPORT INFORMATION
  Report Type: 
  Country: None (occurrence: None)
  Receive Date: 20110318
  Receipt Date: 20110318
  Transmission Date: 20110831
  Serious: Yes (Other)
  Sender: FDA-Public Use
  Company Number: None

PATIENT
  Age: 39 Year
  Sex: Female
  Weight: 90.7194 kg

DRUGS (2)
  1. HYDROCHLOROTHIAZIDE [Suspect]
     Indication: HYPERTENSION
     Dosage: 1 TIME A DAY EVERYDAY PO
     Route: 048
     Dates: start: 20000101, end: 20110317
  2. METOPROLOL TARTRATE [Suspect]
     Indication: HYPERTENSION
     Dosage: 3 TIMES A DAY EVERYDAY PO
     Route: 048
     Dates: start: 20000101, end: 20110317

REACTIONS (2)
  - HEART RATE IRREGULAR [None]
  - BLOOD PRESSURE INCREASED [None]
